FAERS Safety Report 5399910-0 (Version None)
Quarter: 2007Q3

REPORT INFORMATION
  Report Type: 
  Country: None (occurrence: None)
  Receive Date: 20070730
  Receipt Date: 20070723
  Transmission Date: 20080115
  Serious: Yes (Other)
  Sender: FDA-Public Use
  Company Number: PHBS2007BR10299

PATIENT
  Age: 53 Year
  Sex: Female
  Weight: 47 kg

DRUGS (6)
  1. FORASEQ [Suspect]
     Indication: ASTHMA
     Dosage: UNK, UNK
  2. FLOTAC [Suspect]
  3. ACTONEL [Concomitant]
     Indication: OSTEOPOROSIS
  4. ZELNORM [Suspect]
     Indication: CONSTIPATION
     Dosage: 6 MG, BID
     Dates: start: 20030601
  5. SULPAN [Concomitant]
  6. FOSAMAX [Concomitant]

REACTIONS (9)
  - ASTHMA [None]
  - CONSTIPATION [None]
  - ENEMA ADMINISTRATION [None]
  - FEELING ABNORMAL [None]
  - FLATULENCE [None]
  - IRRITABLE BOWEL SYNDROME [None]
  - RETCHING [None]
  - SURGERY [None]
  - SYNCOPE [None]
